FAERS Safety Report 14909715 (Version 3)
Quarter: 2018Q2

REPORT INFORMATION
  Report Type: Report from Study
  Country: CA (occurrence: CA)
  Receive Date: 20180517
  Receipt Date: 20180621
  Transmission Date: 20180711
  Serious: Yes (Other)
  Sender: FDA-Public Use
  Company Number: CA-GLAXOSMITHKLINE-CA2018GSK087390

PATIENT
  Age: 69 Year
  Sex: Female

DRUGS (3)
  1. MEPOLIZUMAB [Suspect]
     Active Substance: MEPOLIZUMAB
     Indication: ASTHMA
     Dosage: 100 MG, Z
     Route: 042
  2. MEPOLIZUMAB [Suspect]
     Active Substance: MEPOLIZUMAB
     Dosage: 100 MG, Z
     Route: 042
  3. MEPOLIZUMAB [Suspect]
     Active Substance: MEPOLIZUMAB
     Dosage: 100 MG, Z
     Route: 042

REACTIONS (18)
  - Arthritis [Unknown]
  - Mobility decreased [Unknown]
  - Cough [Recovering/Resolving]
  - Nasopharyngitis [Unknown]
  - Blood pressure increased [Not Recovered/Not Resolved]
  - Confusional state [Unknown]
  - Pruritus [Unknown]
  - Chest pain [Unknown]
  - Back pain [Unknown]
  - Bone disorder [Unknown]
  - Irritability [Unknown]
  - Lung infection [Unknown]
  - Joint swelling [Unknown]
  - Infection [Recovered/Resolved]
  - Pyrexia [Recovered/Resolved]
  - Arthralgia [Unknown]
  - Productive cough [Unknown]
  - Contusion [Unknown]

NARRATIVE: CASE EVENT DATE: 201801
